FAERS Safety Report 7955644 (Version 3)
Quarter: 2013Q2

REPORT INFORMATION
  Report Type: Spontaneous
  Country: US (occurrence: US)
  Receive Date: 20110523
  Receipt Date: 20130527
  Transmission Date: 20140414
  Serious: Yes (Hospitalization, Congenital Anomaly, Other)
  Sender: FDA-Public Use
  Company Number: US-PFIZER INC-2011105709

PATIENT
  Sex: Male
  Weight: 2.6 kg

DRUGS (11)
  1. EFFEXOR XR [Suspect]
     Indication: PANIC ATTACK
     Dosage: 75 MG, UNK
     Route: 064
     Dates: start: 2004
  2. EFFEXOR XR [Suspect]
     Dosage: 150 MG, DAILY
     Route: 064
     Dates: start: 20050111
  3. EFFEXOR XR [Suspect]
     Dosage: 150 MG, ALTERNATE DAY
     Route: 064
     Dates: start: 2005, end: 2005
  4. EFFEXOR XR [Suspect]
     Dosage: 75 MG, ALTERNATE DAY
     Route: 064
     Dates: start: 2005, end: 2005
  5. EFFEXOR [Suspect]
     Dosage: UNK
     Route: 064
  6. KLONOPIN [Concomitant]
     Dosage: 1 MG, 2X/DAY
     Route: 064
  7. XANAX [Concomitant]
     Indication: INSOMNIA
     Dosage: 0.5 MG, TWICE A DAY/ AS NEEDED
     Route: 064
  8. XANAX [Concomitant]
     Indication: PANIC ATTACK
     Dosage: 0.5 MG, 1X/DAY
     Route: 064
  9. TOPROL [Concomitant]
     Dosage: UNK
     Route: 064
  10. HYDRALAZINE [Concomitant]
     Dosage: UNK
     Route: 064
  11. BENADRYL [Concomitant]
     Dosage: UNK
     Route: 064

REACTIONS (22)
  - Foetal exposure during pregnancy [Unknown]
  - Fallot^s tetralogy [Unknown]
  - Respiratory distress [Unknown]
  - Respiratory syncytial virus bronchiolitis [Unknown]
  - Pulmonary valve stenosis congenital [Unknown]
  - Patent ductus arteriosus [Unknown]
  - Hypoglycaemia neonatal [Unknown]
  - Tricuspid valve incompetence [Unknown]
  - Pulmonary valve incompetence [Unknown]
  - Right atrial dilatation [Unknown]
  - Pulmonary vascular disorder [Unknown]
  - Anomalous pulmonary venous connection [Unknown]
  - Pulmonary valve stenosis [Unknown]
  - Aortic valve incompetence [Unknown]
  - Respiratory failure [Unknown]
  - Congenital pulmonary valve atresia [Unknown]
  - Ventricular septal defect [Unknown]
  - Right ventricular hypertrophy [Unknown]
  - Atrial septal defect [Unknown]
  - Bundle branch block right [Unknown]
  - Cyanosis [Unknown]
  - Cardiomegaly [Unknown]
